FAERS Safety Report 7182408-7 (Version None)
Quarter: 2010Q4

REPORT INFORMATION
  Report Type: 
  Country: None (occurrence: None)
  Receive Date: 20101221
  Receipt Date: 20100512
  Transmission Date: 20110411
  Serious: Yes (Hospitalization)
  Sender: FDA-Public Use
  Company Number: US-AMGEN-KDL408946

PATIENT

DRUGS (7)
  1. ENBREL [Suspect]
     Indication: PSORIASIS
     Dosage: 25 MG, 2 TIMES/WK
     Route: 058
     Dates: start: 20090330
  2. FEXOFENADINE HCL [Concomitant]
  3. LEVOTHYROXINE SODIUM [Concomitant]
  4. CELECOXIB [Concomitant]
  5. AMLODIPINE AND BENAZEPRIL HYDROCHLORIDE [Concomitant]
  6. SIMVASTATIN [Concomitant]
  7. CALCIUM [Concomitant]

REACTIONS (5)
  - CYSTITIS [None]
  - NASOPHARYNGITIS [None]
  - PANCREATITIS [None]
  - SINUSITIS [None]
  - TOOTHACHE [None]
